FAERS Safety Report 17991129 (Version 2)
Quarter: 2020Q3

REPORT INFORMATION
  Report Type: Spontaneous
  Country: US (occurrence: US)
  Receive Date: 20200707
  Receipt Date: 20200908
  Transmission Date: 20201103
  Serious: Yes (Hospitalization, Other)
  Sender: FDA-Public Use
  Company Number: US-ASTRAZENECA-2020SE84456

PATIENT
  Age: 579 Month
  Sex: Male
  Weight: 86.2 kg

DRUGS (41)
  1. NEXIUM [Suspect]
     Active Substance: ESOMEPRAZOLE MAGNESIUM
     Indication: GASTROOESOPHAGEAL REFLUX DISEASE
     Route: 048
     Dates: start: 2011, end: 2017
  2. NEXIUM [Suspect]
     Active Substance: ESOMEPRAZOLE MAGNESIUM
     Indication: GASTROOESOPHAGEAL REFLUX DISEASE
     Dosage: GENERIC
     Route: 065
     Dates: start: 201611, end: 201712
  3. NEXIUM [Suspect]
     Active Substance: ESOMEPRAZOLE MAGNESIUM
     Indication: GASTROOESOPHAGEAL REFLUX DISEASE
     Dosage: GENERIC
     Route: 048
     Dates: start: 20161105
  4. ALPRAZOLAM. [Concomitant]
     Active Substance: ALPRAZOLAM
     Indication: ANXIETY
     Dates: start: 201011, end: 201710
  5. LYRICA [Concomitant]
     Active Substance: PREGABALIN
     Indication: AFFECTIVE DISORDER
     Dates: start: 201109, end: 201709
  6. AMITRIPTYLINE [Concomitant]
     Active Substance: AMITRIPTYLINE
     Dates: start: 20110427
  7. ZOSYN [Concomitant]
     Active Substance: PIPERACILLIN SODIUM\TAZOBACTAM SODIUM
  8. METHYLPREDNISOLONE. [Concomitant]
     Active Substance: METHYLPREDNISOLONE
     Dates: start: 20141128
  9. LEVETIRACETAM. [Concomitant]
     Active Substance: LEVETIRACETAM
     Indication: ANTICONVULSANT DRUG LEVEL
     Dates: start: 201312, end: 201711
  10. VITAMIN C [Concomitant]
     Active Substance: ASCORBIC ACID
     Indication: ROUTINE HEALTH MAINTENANCE
     Dates: start: 2019
  11. ALBUTEROL. [Concomitant]
     Active Substance: ALBUTEROL
     Indication: INHALATION THERAPY
     Dates: start: 201304
  12. IBUPROFEN. [Concomitant]
     Active Substance: IBUPROFEN
     Indication: ANALGESIC INTERVENTION SUPPORTIVE THERAPY
     Dates: start: 201307, end: 201504
  13. SILVADENE [Concomitant]
     Active Substance: SILVER SULFADIAZINE
     Dates: start: 20120315
  14. METAXALONE. [Concomitant]
     Active Substance: METAXALONE
     Dates: start: 20141128
  15. NEXIUM [Suspect]
     Active Substance: ESOMEPRAZOLE MAGNESIUM
     Indication: GASTROOESOPHAGEAL REFLUX DISEASE
     Route: 048
     Dates: start: 201101, end: 201205
  16. NEXIUM [Suspect]
     Active Substance: ESOMEPRAZOLE MAGNESIUM
     Indication: GASTROOESOPHAGEAL REFLUX DISEASE
     Dosage: GENERIC
     Route: 048
     Dates: start: 20171025
  17. AMITRIPTYLINE [Concomitant]
     Active Substance: AMITRIPTYLINE
     Indication: AFFECTIVE DISORDER
     Dates: start: 201104, end: 201105
  18. NAPROXEN. [Concomitant]
     Active Substance: NAPROXEN
     Dates: start: 20141216
  19. ROSUVASTATIN. [Concomitant]
     Active Substance: ROSUVASTATIN
     Dates: start: 20170412
  20. MOVANTIK [Concomitant]
     Active Substance: NALOXEGOL OXALATE
     Dates: start: 20170911
  21. NEXIUM [Suspect]
     Active Substance: ESOMEPRAZOLE MAGNESIUM
     Indication: GASTROOESOPHAGEAL REFLUX DISEASE
     Route: 048
     Dates: start: 201312, end: 201611
  22. NEXIUM [Suspect]
     Active Substance: ESOMEPRAZOLE MAGNESIUM
     Indication: GASTROOESOPHAGEAL REFLUX DISEASE
     Route: 048
     Dates: start: 20140326
  23. MULTIVITAMINS [Concomitant]
     Active Substance: VITAMINS
     Indication: ROUTINE HEALTH MAINTENANCE
     Dates: start: 2014
  24. OXYCONTIN [Concomitant]
     Active Substance: OXYCODONE HYDROCHLORIDE
     Dates: start: 20090830
  25. ATORVASTATIN [Concomitant]
     Active Substance: ATORVASTATIN
  26. TEMAZEPAM. [Concomitant]
     Active Substance: TEMAZEPAM
     Indication: SLEEP DISORDER
     Dates: start: 201110
  27. LUNESTA [Concomitant]
     Active Substance: ESZOPICLONE
     Indication: SLEEP DISORDER
     Dates: start: 201112
  28. CLOTRIMAZOLE. [Concomitant]
     Active Substance: CLOTRIMAZOLE
     Dates: start: 20090831
  29. KEPPRA [Concomitant]
     Active Substance: LEVETIRACETAM
  30. PANTOPRAZOLE [Concomitant]
     Active Substance: PANTOPRAZOLE
  31. NEXIUM [Suspect]
     Active Substance: ESOMEPRAZOLE MAGNESIUM
     Indication: GASTROOESOPHAGEAL REFLUX DISEASE
     Route: 048
     Dates: start: 20151021
  32. VALACICLOVIR [Concomitant]
     Active Substance: VALACYCLOVIR HYDROCHLORIDE
     Dates: start: 20140313
  33. BENZONATATE. [Concomitant]
     Active Substance: BENZONATATE
     Dates: start: 20140313
  34. LEVETIRACETAM. [Concomitant]
     Active Substance: LEVETIRACETAM
     Dates: start: 20140327
  35. NEXIUM [Suspect]
     Active Substance: ESOMEPRAZOLE MAGNESIUM
     Indication: GASTROOESOPHAGEAL REFLUX DISEASE
     Route: 048
     Dates: start: 20110223
  36. PRISTIQ EXTENDED?RELEASE [Concomitant]
     Active Substance: DESVENLAFAXINE SUCCINATE
     Indication: AFFECTIVE DISORDER
     Dates: start: 201105, end: 201106
  37. HYDROCODONE [Concomitant]
     Active Substance: HYDROCODONE
     Dates: start: 20090811
  38. TIZANIDINE. [Concomitant]
     Active Substance: TIZANIDINE
     Dates: start: 20101012
  39. PREGABALIN. [Concomitant]
     Active Substance: PREGABALIN
  40. IBUPROFEN. [Concomitant]
     Active Substance: IBUPROFEN
     Dates: start: 20150406
  41. BUPROPION. [Concomitant]
     Active Substance: BUPROPION
     Dates: start: 20160203

REACTIONS (3)
  - Chronic kidney disease [Not Recovered/Not Resolved]
  - Tubulointerstitial nephritis [Unknown]
  - Acute kidney injury [Unknown]

NARRATIVE: CASE EVENT DATE: 201710
